FAERS Safety Report 7275174-8 (Version None)
Quarter: 2011Q1

REPORT INFORMATION
  Report Type: 
  Country: None (occurrence: None)
  Receive Date: 20110204
  Receipt Date: 20110201
  Transmission Date: 20110831
  Serious: Yes (Hospitalization)
  Sender: FDA-Public Use
  Company Number: BR-ABBOTT-10P-020-0662170-00

PATIENT
  Sex: Female
  Weight: 71 kg

DRUGS (5)
  1. FOLIC ACID [Concomitant]
     Indication: PROPHYLAXIS
     Route: 048
  2. METHOTREXATE [Concomitant]
     Indication: RHEUMATOID ARTHRITIS
     Route: 048
  3. HUMIRA [Suspect]
     Indication: RHEUMATOID ARTHRITIS
     Route: 058
     Dates: end: 20100827
  4. FOLIC ACID [Concomitant]
     Indication: LIVER INJURY
  5. PREDNISONE [Concomitant]
     Indication: RHEUMATOID ARTHRITIS
     Route: 048

REACTIONS (8)
  - RHEUMATOID ARTHRITIS [None]
  - FEELING COLD [None]
  - INFLUENZA [None]
  - SWELLING [None]
  - BUNION [None]
  - PAIN [None]
  - ILL-DEFINED DISORDER [None]
  - FOOT DEFORMITY [None]
